FAERS Safety Report 9732011 (Version 2)
Quarter: 2013Q4

REPORT INFORMATION
  Report Type: Spontaneous
  Country: IL (occurrence: IL)
  Receive Date: 20131205
  Receipt Date: 20131205
  Transmission Date: 20140711
  Serious: Yes (Other)
  Sender: FDA-Public Use
  Company Number: IL-JNJFOC-20130600260

PATIENT
  Age: 68 Year
  Sex: Female

DRUGS (1)
  1. SIMPONI [Suspect]
     Indication: RHEUMATOID ARTHRITIS
     Route: 058
     Dates: start: 20130108

REACTIONS (5)
  - Hypoaesthesia [Recovering/Resolving]
  - Pruritus [Unknown]
  - Throat irritation [Unknown]
  - Rash [Unknown]
  - Pain [Unknown]
